FAERS Safety Report 10716750 (Version 1)
Quarter: 2015Q1

REPORT INFORMATION
  Report Type: Spontaneous
  Country: FR (occurrence: FR)
  Receive Date: 20150116
  Receipt Date: 20150116
  Transmission Date: 20150721
  Serious: Yes (Hospitalization)
  Sender: FDA-Public Use
  Company Number: FR-GE HEALTHCARE MEDICAL DIAGNOSTICS-OMPQ-PR-1501S-0017

PATIENT
  Age: 40 Year
  Sex: Female

DRUGS (3)
  1. OMNIPAQUE [Suspect]
     Active Substance: IOHEXOL
     Indication: DIAGNOSTIC PROCEDURE
  2. HYDROCORTANCYL [Suspect]
     Active Substance: PREDNISONE
  3. OMNIPAQUE [Suspect]
     Active Substance: IOHEXOL
     Indication: PRODUCT USED FOR UNKNOWN INDICATION
     Route: 014
     Dates: start: 20140617, end: 20140617

REACTIONS (4)
  - Meningeal disorder [Recovered/Resolved]
  - Muscular weakness [None]
  - Hyperthermia [None]
  - Nuchal rigidity [None]

NARRATIVE: CASE EVENT DATE: 20140620
